FAERS Safety Report 5140110-7 (Version None)
Quarter: 2006Q4

REPORT INFORMATION
  Report Type: 
  Country: None (occurrence: None)
  Receive Date: 20061024
  Receipt Date: 20061004
  Transmission Date: 20070319
  Serious: Yes (Hospitalization, Other)
  Sender: FDA-Public Use
  Company Number: US200610001006

PATIENT
  Age: 11 Year
  Sex: Male

DRUGS (5)
  1. ZYPREXA [Suspect]
     Indication: BIPOLAR DISORDER
  2. PROZAC [Suspect]
     Indication: BIPOLAR DISORDER
     Dosage: SEE IMAGE
  3. DEPAKOTE [Concomitant]
  4. SEROQUEL [Concomitant]
  5. ABILIFY [Concomitant]

REACTIONS (14)
  - AKATHISIA [None]
  - ASPIRATION [None]
  - BALANCE DISORDER [None]
  - BRAIN DAMAGE [None]
  - DEHYDRATION [None]
  - DYSKINESIA [None]
  - DYSTONIA [None]
  - ENCEPHALOPATHY [None]
  - EXCORIATION [None]
  - FACIAL PALSY [None]
  - MUSCULAR WEAKNESS [None]
  - RENAL FAILURE [None]
  - RESTLESSNESS [None]
  - SPEECH DISORDER [None]
